FAERS Safety Report 11964095 (Version 1)
Quarter: 2016Q1

REPORT INFORMATION
  Report Type: Spontaneous
  Country: US (occurrence: None)
  Receive Date: 20160122
  Receipt Date: 20160122
  Transmission Date: 20160526
  Serious: No
  Sender: FDA-Public Use
  Company Number: None

PATIENT
  Age: 53 Year
  Sex: Female
  Weight: 73.48 kg

DRUGS (10)
  1. MICROZIDE [Concomitant]
     Active Substance: HYDROCHLOROTHIAZIDE
  2. LIPITOR [Concomitant]
     Active Substance: ATORVASTATIN CALCIUM
  3. LORITAB [Concomitant]
  4. PHENTERMINE. [Concomitant]
     Active Substance: PHENTERMINE
  5. WELLBUTRIN [Concomitant]
     Active Substance: BUPROPION HYDROCHLORIDE
  6. GABAPENTIN. [Concomitant]
     Active Substance: GABAPENTIN
  7. LUNESTA [Concomitant]
     Active Substance: ESZOPICLONE
  8. MULTI VITAMIN [Concomitant]
     Active Substance: VITAMINS
  9. ZECUITY [Suspect]
     Active Substance: SUMATRIPTAN SUCCINATE
     Indication: MIGRAINE
     Dosage: 1 PATCH, AS NEEDED, APPLIED AS MEDICATED PATCH TO SKIN
  10. DRISDOL [Concomitant]
     Active Substance: ERGOCALCIFEROL

REACTIONS (4)
  - Application site rash [None]
  - Application site pain [None]
  - Discomfort [None]
  - Application site erythema [None]

NARRATIVE: CASE EVENT DATE: 20160109
